FAERS Safety Report 4697727-3 (Version None)
Quarter: 2005Q2

REPORT INFORMATION
  Report Type: 
  Country: None (occurrence: None)
  Receive Date: 20050621
  Receipt Date: 20050621
  Transmission Date: 20051028
  Serious: Yes (Hospitalization)
  Sender: FDA-Public Use
  Company Number: None

PATIENT
  Age: 49 Year
  Sex: Male
  Weight: 89.3 kg

DRUGS (1)
  1. ERLOTINIB [Suspect]

REACTIONS (2)
  - DYSPNOEA [None]
  - RASH [None]
